FAERS Safety Report 9135040 (Version 3)
Quarter: 2013Q1

REPORT INFORMATION
  Report Type: Report from Study
  Country: BR (occurrence: BR)
  Receive Date: 20130304
  Receipt Date: 20130327
  Transmission Date: 20140127
  Serious: Yes (Other)
  Sender: FDA-Public Use
  Company Number: BR-ABBOTT-13P-020-1055241-00

PATIENT
  Sex: Female
  Weight: 78 kg

DRUGS (11)
  1. HUMIRA [Suspect]
     Indication: ANKYLOSING SPONDYLITIS
     Route: 058
  2. CYMBALTA [Concomitant]
     Indication: FIBROMYALGIA
     Route: 048
     Dates: start: 201210
  3. LYRICA [Concomitant]
     Indication: PAIN
     Route: 048
     Dates: start: 201209, end: 201211
  4. SIMVASTATIN [Concomitant]
     Indication: BLOOD CHOLESTEROL INCREASED
     Route: 048
  5. ALPRAZOLAM [Concomitant]
     Indication: SLEEP DISORDER THERAPY
     Route: 048
  6. ALPRAZOLAM [Concomitant]
     Indication: RELAXATION THERAPY
  7. ALPRAZOLAM [Concomitant]
     Indication: PAIN
  8. CALCIUM BUTAZONA [Concomitant]
     Indication: BONE DISORDER
     Route: 048
     Dates: start: 201208
  9. UNKNOWN MEDICATION [Concomitant]
     Indication: PAIN
     Dosage: 1 TAB QAM
     Route: 048
  10. TOPIRAMATE [Concomitant]
     Indication: ANTIDEPRESSANT THERAPY
  11. TOPIRAMATE [Concomitant]
     Indication: ANTIINFLAMMATORY THERAPY

REACTIONS (6)
  - Abasia [Recovered/Resolved]
  - Arthralgia [Recovered/Resolved]
  - Musculoskeletal stiffness [Not Recovered/Not Resolved]
  - Arthralgia [Recovered/Resolved]
  - Gait disturbance [Not Recovered/Not Resolved]
  - Arthralgia [Not Recovered/Not Resolved]
